FAERS Safety Report 20806996 (Version 2)
Quarter: 2022Q2

REPORT INFORMATION
  Report Type: Spontaneous
  Country: FI (occurrence: FI)
  Receive Date: 20220510
  Receipt Date: 20220520
  Transmission Date: 20220721
  Serious: No
  Sender: FDA-Public Use
  Company Number: FI-SA-SAC20220502001068

PATIENT
  Age: 76 Year
  Sex: Female

DRUGS (19)
  1. TOUJEO [Suspect]
     Active Substance: INSULIN GLARGINE
     Indication: Type 2 diabetes mellitus
     Dosage: 58 IU, QD
  2. INSULIN LISPRO [Concomitant]
     Active Substance: INSULIN LISPRO
     Dosage: UNK
  3. INSULIN LISPRO [Concomitant]
     Active Substance: INSULIN LISPRO
  4. ALLOPURINOL [Concomitant]
     Active Substance: ALLOPURINOL
  5. AMLODIPINE [Concomitant]
     Active Substance: AMLODIPINE BESYLATE
  6. DIGOXIN [Concomitant]
     Active Substance: DIGOXIN
  7. BISOPROLOL [Concomitant]
     Active Substance: BISOPROLOL
  8. NORSPAN [Concomitant]
     Active Substance: BUPRENORPHINE
  9. FLUTICASONE FUROATE\VILANTEROL TRIFENATATE [Concomitant]
     Active Substance: FLUTICASONE FUROATE\VILANTEROL TRIFENATATE
  10. CALCIUM CARBONATE\ERGOCALCIFEROL [Concomitant]
     Active Substance: CALCIUM CARBONATE\ERGOCALCIFEROL
  11. LOSARTAN [Concomitant]
     Active Substance: LOSARTAN
  12. MELATONIN [Concomitant]
     Active Substance: MELATONIN
     Dosage: 0.5 DF, QD
  13. VITAMIN B [Concomitant]
     Active Substance: VITAMIN B
  14. PREDNISOLONE [Concomitant]
     Active Substance: PREDNISOLONE
  15. ROSUVASTATIN [Concomitant]
     Active Substance: ROSUVASTATIN
  16. SPIRONOLACTONE [Concomitant]
     Active Substance: SPIRONOLACTONE
  17. IMOVANE [Concomitant]
     Active Substance: ZOPICLONE
     Dosage: 0.5 DF
  18. FUROSEMIDE [Concomitant]
     Active Substance: FUROSEMIDE
     Dosage: UNK UNK, Q12H
  19. PANTOPRAZOLE SODIUM [Concomitant]
     Active Substance: PANTOPRAZOLE SODIUM

REACTIONS (9)
  - Feeling abnormal [Unknown]
  - Lung disorder [Unknown]
  - Renal disorder [Unknown]
  - Malaise [Recovered/Resolved]
  - Back pain [Recovering/Resolving]
  - Feeling abnormal [Recovering/Resolving]
  - Blood glucose decreased [Recovering/Resolving]
  - Blood glucose increased [Unknown]
  - Blood glucose fluctuation [Recovering/Resolving]
